FAERS Safety Report 5537013-2 (Version None)
Quarter: 2007Q4

REPORT INFORMATION
  Report Type: 
  Country: None (occurrence: None)
  Receive Date: 20071207
  Receipt Date: 20071123
  Transmission Date: 20080405
  Serious: Yes (Other)
  Sender: FDA-Public Use
  Company Number: CA-JNJFOC-20071109723

PATIENT
  Sex: Female

DRUGS (6)
  1. MONISTAT 3DAY TRTMNT [Suspect]
     Indication: FUNGAL INFECTION
     Route: 067
  2. MONISTAT 7 CREAM COMBO PACK W/PREFAPPL [Suspect]
     Route: 067
  3. MONISTAT 7 CREAM COMBO PACK W/PREFAPPL [Suspect]
     Indication: DRUG USE FOR UNKNOWN INDICATION
     Route: 067
  4. MONISTAT 7 CREAM COMBO PACK W/PREFAPPL [Suspect]
     Route: 061
  5. MONISTAT 7 CREAM COMBO PACK W/PREFAPPL [Suspect]
     Route: 061
  6. FLAGYSTATIN [Concomitant]
     Indication: FUNGAL INFECTION
     Route: 065

REACTIONS (1)
  - MENORRHAGIA [None]
